FAERS Safety Report 5708753-7 (Version None)
Quarter: 2008Q2

REPORT INFORMATION
  Report Type: 
  Country: None (occurrence: None)
  Receive Date: 20080417
  Receipt Date: 20080409
  Transmission Date: 20081010
  Serious: Yes (Hospitalization)
  Sender: FDA-Public Use
  Company Number: JP-ABBOTT-08P-087-0440993-00

PATIENT
  Sex: Female

DRUGS (6)
  1. KLARICID [Suspect]
     Indication: PNEUMONIA PRIMARY ATYPICAL
     Route: 048
     Dates: start: 20080225, end: 20080227
  2. LOXOPROFEN [Suspect]
     Indication: PYREXIA
     Route: 048
     Dates: start: 20080225, end: 20080229
  3. AZYTHROMYCIN HYDRATE [Suspect]
     Indication: PNEUMONIA
     Route: 048
     Dates: start: 20080227, end: 20080229
  4. PAROXETINE HCL [Concomitant]
     Indication: PANIC DISORDER
     Route: 048
  5. FLUTOPRAZEPAM [Concomitant]
     Indication: PANIC DISORDER
     Route: 048
  6. ETIZOLAM [Concomitant]
     Indication: PANIC DISORDER
     Route: 048

REACTIONS (5)
  - INTERSTITIAL LUNG DISEASE [None]
  - MENTAL IMPAIRMENT [None]
  - OXYGEN SATURATION DECREASED [None]
  - PYREXIA [None]
  - RESPIRATORY DISORDER [None]
